FAERS Safety Report 12467535 (Version 1)
Quarter: 2016Q2

REPORT INFORMATION
  Report Type: Spontaneous
  Country: JP (occurrence: JP)
  Receive Date: 20160615
  Receipt Date: 20160615
  Transmission Date: 20160815
  Serious: Yes (Death, Other)
  Sender: FDA-Public Use
  Company Number: GXJP2016JP000921

PATIENT
  Age: 72 Year
  Sex: Female

DRUGS (8)
  1. CARBOPLATIN INTRAVENOUS INFUSION [Suspect]
     Active Substance: CARBOPLATIN
     Indication: OVARIAN CANCER RECURRENT
     Dosage: 400 MG, QD
     Route: 065
  2. PACLITAXEL. [Suspect]
     Active Substance: PACLITAXEL
     Indication: OVARIAN CANCER RECURRENT
     Dosage: 80 MG/M2, UNK, DAY 1, 8, 15
     Route: 065
  3. ETOPOSIDE. [Suspect]
     Active Substance: ETOPOSIDE
     Indication: OVARIAN CANCER STAGE II
     Dosage: 400 MG, UNK
     Route: 033
  4. THERARUBICIN [Suspect]
     Active Substance: PIRARUBICIN HYDROCHLORIDE
     Indication: OVARIAN CANCER STAGE II
     Dosage: 60 MG, UNK
     Route: 065
  5. CYCLOPHOSPHAMIDE. [Suspect]
     Active Substance: CYCLOPHOSPHAMIDE
     Indication: OVARIAN CANCER STAGE II
     Dosage: 400 MG, UNK
     Route: 065
  6. CPT-11 [Suspect]
     Active Substance: IRINOTECAN
     Indication: OVARIAN CANCER STAGE II
     Dosage: 100 MG/M2, UNK, DAY1,8,15
     Route: 065
  7. CARBOPLATIN INTRAVENOUS INFUSION [Suspect]
     Active Substance: CARBOPLATIN
     Indication: OVARIAN CANCER STAGE II
     Dosage: AUC 5, DAY1
     Route: 065
  8. CISPLATIN. [Suspect]
     Active Substance: CISPLATIN
     Indication: OVARIAN CANCER STAGE II
     Dosage: 80 MG, UNK
     Route: 033

REACTIONS (9)
  - Cerebral haemorrhage [Fatal]
  - Myelodysplastic syndrome [Unknown]
  - Anaemia [Unknown]
  - Acute myeloid leukaemia [Fatal]
  - Sepsis [Fatal]
  - Enteritis infectious [Fatal]
  - Pneumonia [Fatal]
  - Disseminated intravascular coagulation [Fatal]
  - Neutropenia [Unknown]
